FAERS Safety Report 7279248-7 (Version None)
Quarter: 2011Q1

REPORT INFORMATION
  Report Type: 
  Country: None (occurrence: None)
  Receive Date: 20110207
  Receipt Date: 20110131
  Transmission Date: 20110831
  Serious: Yes (Other)
  Sender: FDA-Public Use
  Company Number: JP-PFIZER INC-2011023374

PATIENT
  Age: 63 Year
  Sex: Male

DRUGS (3)
  1. CYCLOPHOSPHAMIDE [Suspect]
  2. PREDNISOLONE [Suspect]
  3. METHYLPREDNISOLONE [Suspect]

REACTIONS (1)
  - PNEUMONIA [None]
